FAERS Safety Report 8027199-2 (Version None)
Quarter: 2012Q1

REPORT INFORMATION
  Report Type: 
  Country: None (occurrence: None)
  Receive Date: 20120104
  Receipt Date: 20111219
  Transmission Date: 20120608
  Serious: Yes (Hospitalization)
  Sender: FDA-Public Use
  Company Number: THQ2011A08648

PATIENT
  Age: 81 Year
  Sex: Female

DRUGS (18)
  1. FOSINOPRIL SODIUM AND HYDROCHLOROTHIAZIDE [Suspect]
     Dosage: 1 DF (1 DF, 1 IN 1 D)
     Route: 048
     Dates: end: 20110822
  2. DIGOXIN [Suspect]
     Dosage: (0.125 MG, 6 IN 1 WK)
     Route: 048
     Dates: end: 20110822
  3. LOPERAMIDE HCL [Suspect]
     Indication: PRODUCT USED FOR UNKNOWN INDICATION
     Dosage: 4 MG (4 MG, 1 IN 1 D)
     Route: 048
     Dates: start: 20110706, end: 20110822
  4. DOMPERIDONE [Suspect]
     Indication: PRODUCT USED FOR UNKNOWN INDICATION
     Route: 048
     Dates: start: 20110706, end: 20110822
  5. ACETAMINOPHEN W/ CODEINE [Suspect]
     Indication: PRODUCT USED FOR UNKNOWN INDICATION
     Dosage: 4 DF (2 DF, 2 IN 1 D)
     Route: 048
     Dates: start: 20110316, end: 20110822
  6. GLUCOPHAGE [Suspect]
     Dosage: 3000 MG (1000 MG, 3 IN 1 D)
     Route: 048
     Dates: end: 20110822
  7. PREVISCAN (FLUINDIONE) [Suspect]
     Indication: PRODUCT USED FOR UNKNOWN INDICATION
     Dosage: 15 MG (15 MG, 1 IN 1 D)
     Route: 048
     Dates: end: 20110822
  8. METOPROLOL TARTRATE [Concomitant]
  9. ZOLPIDEM [Suspect]
     Indication: PRODUCT USED FOR UNKNOWN INDICATION
     Dosage: 5 MG (5 MG, 1 IN 1 D)
     Route: 048
     Dates: start: 20110726, end: 20110822
  10. PHLOROGLUCINOL [Suspect]
     Indication: PRODUCT USED FOR UNKNOWN INDICATION
     Route: 048
     Dates: start: 20110816, end: 20110822
  11. LEVOTHYROXINE SODIUM [Concomitant]
  12. PIASCLEDINE (GLYCINE MAX SEED OIL, PERSEA AMERICANA OIL) [Suspect]
     Dosage: 300 MG (300 MG, 1 IN 1 D)
     Route: 048
  13. FLECTOR [Suspect]
     Dosage: 1% GEL (1% GEL)
     Route: 061
     Dates: start: 20110608, end: 20110822
  14. ONGLYZA [Suspect]
     Indication: PRODUCT USED FOR UNKNOWN INDICATION
     Dosage: 5 MG (5 MG, 1 IN 1 D)
     Route: 048
     Dates: start: 20110706, end: 20110822
  15. LANSOPRAZOLE [Suspect]
     Dosage: 15 MG (15 MG, 1 IN 1 D)
     Route: 048
     Dates: start: 20110706, end: 20110822
  16. CRESTOR [Suspect]
     Dosage: 5 MG (5 MG, 1 IN 1 D)
     Route: 048
     Dates: end: 20110822
  17. FUROSEMIDE [Suspect]
     Dosage: 40 MG (40 MG, 1 IN 1 D)
     Route: 048
     Dates: end: 20110822
  18. SMECTA (GLUCOSE MONOHYDRATE, ALUMINIUM MAGNESIUM SILICATE, ALUMINIUM H [Suspect]
     Indication: PRODUCT USED FOR UNKNOWN INDICATION
     Route: 048
     Dates: start: 20110816, end: 20110822

REACTIONS (8)
  - METABOLIC ACIDOSIS [None]
  - HYPERKALAEMIA [None]
  - RENAL FAILURE [None]
  - INTERNATIONAL NORMALISED RATIO INCREASED [None]
  - CONDITION AGGRAVATED [None]
  - DIARRHOEA [None]
  - DIALYSIS [None]
  - DEHYDRATION [None]
